FAERS Safety Report 15313157 (Version 3)
Quarter: 2018Q3

REPORT INFORMATION
  Report Type: Report from Study
  Country: US (occurrence: US)
  Receive Date: 20180823
  Receipt Date: 20180910
  Transmission Date: 20181010
  Serious: Yes (Other)
  Sender: FDA-Public Use
  Company Number: US-EXELIXIS-CABO-18015487

PATIENT
  Sex: Female

DRUGS (1)
  1. COMETRIQ [Suspect]
     Active Substance: CABOZANTINIB S-MALATE
     Indication: THYROID CANCER
     Dosage: 140 MG, QD (1 CAPSULE OF 80 MG AND 3 CAPSULES OF 20 MG, WITHOUT FOOD)
     Route: 048
     Dates: start: 20180729, end: 2018

REACTIONS (6)
  - Dysphonia [Unknown]
  - Dysgeusia [Unknown]
  - Fatigue [Unknown]
  - Product use complaint [Unknown]
  - Muscular weakness [Unknown]
  - Deafness [Unknown]
